FAERS Safety Report 8575859-7 (Version None)
Quarter: 2012Q3

REPORT INFORMATION
  Report Type: 
  Country: None (occurrence: None)
  Receive Date: 20120807
  Receipt Date: 20120726
  Transmission Date: 20120928
  Serious: Yes (Other)
  Sender: FDA-Public Use
  Company Number: JP-SANOFI-AVENTIS-2012SA055414

PATIENT
  Age: 41 Year
  Sex: Female
  Weight: 77 kg

DRUGS (12)
  1. ZOLPIDEM [Suspect]
     Route: 048
     Dates: start: 20111101, end: 20111101
  2. TRIAZOLAM [Suspect]
     Route: 048
     Dates: start: 20111101, end: 20111101
  3. BROTIZOLAM [Suspect]
     Indication: INSOMNIA
     Route: 048
     Dates: start: 20110101, end: 20110201
  4. LOXONIN [Concomitant]
     Dosage: FORMULATION
  5. ZOLPIDEM [Suspect]
     Route: 048
     Dates: start: 20080101, end: 20110101
  6. BROTIZOLAM [Suspect]
     Route: 048
     Dates: start: 20111101, end: 20111101
  7. TRIAZOLAM [Suspect]
     Indication: INSOMNIA
     Route: 048
     Dates: start: 19980101, end: 20010101
  8. TRIAZOLAM [Suspect]
     Route: 048
     Dates: start: 20030101
  9. ZOLPIDEM [Suspect]
     Route: 048
     Dates: start: 20110101, end: 20111101
  10. THEO-DUR [Concomitant]
     Route: 048
  11. ZOLPIDEM [Suspect]
     Indication: INSOMNIA
     Route: 048
     Dates: start: 20010101, end: 20030101
  12. PULMICORT [Concomitant]
     Route: 055

REACTIONS (1)
  - PARASOMNIA [None]
